FAERS Safety Report 9759193 (Version 1)
Quarter: 2013Q4

REPORT INFORMATION
  Report Type: Spontaneous
  Country: US (occurrence: None)
  Receive Date: 20131216
  Receipt Date: 20131216
  Transmission Date: 20140711
  Serious: Yes (Disabling)
  Sender: FDA-Public Use
  Company Number: 163-21880-12110406 (0)

PATIENT
  Age: 68 Year
  Sex: Female

DRUGS (1)
  1. REVLIMID [Suspect]
     Indication: PLASMA CELL MYELOMA
     Dosage: 25 MG, 1 IN 1 D, PO?10 MG, 21 IN 21 D, PO

REACTIONS (18)
  - Plasma cell myeloma [None]
  - Neuropathy peripheral [None]
  - Hypoaesthesia [None]
  - Skin discolouration [None]
  - Dysgeusia [None]
  - Diarrhoea [None]
  - Constipation [None]
  - Back pain [None]
  - Ecchymosis [None]
  - Rash [None]
  - Oedema peripheral [None]
  - Arthralgia [None]
  - Skin atrophy [None]
  - Epistaxis [None]
  - Visual impairment [None]
  - Contusion [None]
  - Nasopharyngitis [None]
  - Pain [None]
